FAERS Safety Report 12694657 (Version 2)
Quarter: 2016Q3

REPORT INFORMATION
  Report Type: Spontaneous
  Country: US (occurrence: KR)
  Receive Date: 20160829
  Receipt Date: 20160914
  Transmission Date: 20161109
  Serious: Yes (Death, Life-Threatening, Hospitalization, Other)
  Sender: FDA-Public Use
  Company Number: US-SA-2016SA158199

PATIENT
  Age: 37 Year
  Sex: Male
  Weight: 73.1 kg

DRUGS (6)
  1. RAMUCIRUMAB [Concomitant]
     Active Substance: RAMUCIRUMAB
     Route: 042
     Dates: start: 20160513, end: 20160513
  2. ELOXATIN [Suspect]
     Active Substance: OXALIPLATIN
     Indication: ADENOCARCINOMA GASTRIC
     Route: 042
     Dates: start: 20160426, end: 20160426
  3. RAMUCIRUMAB [Concomitant]
     Active Substance: RAMUCIRUMAB
     Route: 042
     Dates: start: 20160711, end: 20160711
  4. ELOXATIN [Suspect]
     Active Substance: OXALIPLATIN
     Indication: ADENOCARCINOMA GASTRIC
     Route: 042
     Dates: start: 20151104, end: 20151104
  5. PACLITAXEL. [Concomitant]
     Active Substance: PACLITAXEL
     Route: 065
     Dates: start: 20160718, end: 20160718
  6. PACLITAXEL. [Concomitant]
     Active Substance: PACLITAXEL
     Route: 065
     Dates: start: 20160513, end: 20160513

REACTIONS (6)
  - Dyspepsia [Fatal]
  - Multiple organ dysfunction syndrome [Fatal]
  - Gastric perforation [Fatal]
  - Peritonitis [Fatal]
  - Disease progression [Unknown]
  - Abdominal pain [Fatal]

NARRATIVE: CASE EVENT DATE: 20160426
